FAERS Safety Report 10470983 (Version 2)
Quarter: 2015Q1

REPORT INFORMATION
  Report Type: Spontaneous
  Country: US (occurrence: US)
  Receive Date: 20140923
  Receipt Date: 20150225
  Transmission Date: 20150720
  Serious: Yes (Death, Life-Threatening, Hospitalization, Disabling, Other)
  Sender: FDA-Public Use
  Company Number: US-009507513-1409USA010736

PATIENT
  Sex: Male
  Weight: 113.38 kg

DRUGS (2)
  1. JANUMET [Suspect]
     Active Substance: METFORMIN HYDROCHLORIDE\SITAGLIPTIN PHOSPHATE
     Indication: TYPE 2 DIABETES MELLITUS
     Dosage: 50/500MG, QD
     Route: 048
     Dates: start: 20121018, end: 20121025
  2. JANUVIA [Suspect]
     Active Substance: SITAGLIPTIN PHOSPHATE
     Indication: TYPE 2 DIABETES MELLITUS
     Dosage: 100 MG, QD
     Route: 048
     Dates: start: 20131125, end: 20140217

REACTIONS (6)
  - Disability [Unknown]
  - Pancreatic carcinoma [Unknown]
  - Death [Fatal]
  - Emotional distress [Unknown]
  - Gastrooesophageal reflux disease [Unknown]
  - Thrombosis [Unknown]

NARRATIVE: CASE EVENT DATE: 2014
